FAERS Safety Report 7968450-4 (Version None)
Quarter: 2011Q4

REPORT INFORMATION
  Report Type: 
  Country: None (occurrence: None)
  Receive Date: 20111122
  Receipt Date: 20110727
  Transmission Date: 20120403
  Serious: No
  Sender: FDA-Public Use
  Company Number: PHHY2011US70049

PATIENT
  Age: 48 Year
  Sex: Female

DRUGS (5)
  1. SYNTHROID [Concomitant]
  2. EFFEXOR [Concomitant]
  3. DILAUDID [Concomitant]
  4. GILENYA [Suspect]
     Indication: RELAPSING-REMITTING MULTIPLE SCLEROSIS
     Dosage: 0.5 MG, QD, ORAL
     Route: 048
     Dates: start: 20110714
  5. VALIUM [Concomitant]

REACTIONS (3)
  - FAECAL INCONTINENCE [None]
  - PARAESTHESIA [None]
  - HYPOAESTHESIA [None]
